FAERS Safety Report 5454680-2 (Version None)
Quarter: 2007Q3

REPORT INFORMATION
  Report Type: 
  Country: None (occurrence: None)
  Receive Date: 20070917
  Receipt Date: 20060901
  Transmission Date: 20080115
  Serious: No
  Sender: FDA-Public Use
  Company Number: US-ASTRAZENECA-2006UW17368

PATIENT
  Age: 37 Year
  Sex: Male
  Weight: 72.6 kg

DRUGS (1)
  1. SEROQUEL [Suspect]
     Indication: SOCIAL PHOBIA
     Route: 048

REACTIONS (6)
  - ABNORMAL DREAMS [None]
  - DIARRHOEA [None]
  - MUSCLE RIGIDITY [None]
  - PALPITATIONS [None]
  - PYREXIA [None]
  - RESTLESSNESS [None]
